FAERS Safety Report 8874593 (Version 2)
Quarter: 2012Q4

REPORT INFORMATION
  Report Type: Report from Study
  Country: US (occurrence: US)
  Receive Date: 20121023
  Receipt Date: 20121031
  Transmission Date: 20130627
  Serious: Yes (Hospitalization)
  Sender: FDA-Public Use
  Company Number: US-ABBOTT-12P-163-0996856-00

PATIENT
  Sex: Male

DRUGS (5)
  1. HUMIRA [Suspect]
     Indication: PSORIATIC ARTHROPATHY
     Dates: start: 2004, end: 2010
  2. HUMIRA [Suspect]
     Indication: PSORIASIS
     Dates: start: 201105
  3. HUMIRA [Suspect]
     Indication: CROHN^S DISEASE
  4. UNKNOWN MEDICATION [Concomitant]
     Indication: HYPERTENSION
  5. UNKNOWN MEDICATION [Concomitant]
     Indication: BLOOD CHOLESTEROL INCREASED

REACTIONS (3)
  - Abnormal behaviour [Unknown]
  - Bipolar disorder [Not Recovered/Not Resolved]
  - Major depression [Not Recovered/Not Resolved]
